FAERS Safety Report 5505993-7 (Version None)
Quarter: 2007Q4

REPORT INFORMATION
  Report Type: 
  Country: None (occurrence: None)
  Receive Date: 20071101
  Receipt Date: 20071101
  Transmission Date: 20080405
  Serious: Yes (Hospitalization)
  Sender: FDA-Public Use
  Company Number: None

PATIENT
  Age: 57 Year
  Sex: Female
  Weight: 95.4 kg

DRUGS (3)
  1. DOCETAXEL [Suspect]
     Indication: BREAST CANCER
     Dosage: 60MG/M2 1 Q 3 WEEKS IV
     Route: 042
     Dates: start: 20071023
  2. CYCLOPHOSPHAMIDE [Suspect]
     Indication: BREAST CANCER
     Dosage: 600MG 1 Q 3 WEEKS IV
     Route: 042
     Dates: start: 20071023
  3. NOV-002 [Suspect]
     Indication: BREAST CANCER
     Dosage: 60MG DAILY SQ
     Route: 058
     Dates: start: 20071023

REACTIONS (1)
  - FEMORAL ARTERY OCCLUSION [None]
